FAERS Safety Report 9305942 (Version 2)
Quarter: 2013Q2

REPORT INFORMATION
  Report Type: Report from Study
  Country: JP (occurrence: JP)
  Receive Date: 20130523
  Receipt Date: 20130628
  Transmission Date: 20140414
  Serious: Yes (Other)
  Sender: FDA-Public Use
  Company Number: JP-ROCHE-1227625

PATIENT
  Age: 73 Year
  Sex: Female
  Weight: 40 kg

DRUGS (4)
  1. ALTEPLASE [Suspect]
     Indication: EMBOLIC STROKE
     Route: 042
     Dates: start: 20130307, end: 20130307
  2. NICARDIPINE HYDROCHLORIDE [Suspect]
     Indication: PRODUCT USED FOR UNKNOWN INDICATION
     Route: 065
  3. RADICUT [Concomitant]
     Route: 065
     Dates: start: 20130307, end: 20130310
  4. RIVAROXABAN [Concomitant]
     Route: 048
     Dates: start: 20130308

REACTIONS (1)
  - Hemiplegia [Recovered/Resolved]
